FAERS Safety Report 16149727 (Version 1)
Quarter: 2019Q2

REPORT INFORMATION
  Report Type: Spontaneous
  Country: CZ (occurrence: CZ)
  Receive Date: 20190402
  Receipt Date: 20190402
  Transmission Date: 20190711
  Serious: Yes (Death, Hospitalization, Other)
  Sender: FDA-Public Use
  Company Number: CZ-MYLANLABS-2019M1028420

PATIENT
  Age: 71 Year
  Sex: Male

DRUGS (6)
  1. COLCHICINE. [Suspect]
     Active Substance: COLCHICINE
     Indication: PERICARDIAL EFFUSION
     Dosage: 1 MILLIGRAM, QD
  2. CLARITHROMYCIN. [Concomitant]
     Active Substance: CLARITHROMYCIN
     Indication: EVIDENCE BASED TREATMENT
     Dosage: UNK
  3. IBUPROFEN. [Suspect]
     Active Substance: IBUPROFEN
     Indication: PLEURISY
     Dosage: 1200 MG, QD
  4. METHYLPREDNISOLONE. [Suspect]
     Active Substance: METHYLPREDNISOLONE
     Indication: PERICARDIAL EFFUSION
     Dosage: 0.8 MG/KG
  5. COLCHICINE. [Suspect]
     Active Substance: COLCHICINE
     Dosage: 1.5 MILLIGRAM, QD
  6. AMOXICILLIN/CLAVULANIC ACID [Concomitant]
     Active Substance: AMOXICILLIN\CLAVULANIC ACID
     Indication: EVIDENCE BASED TREATMENT
     Dosage: UNK

REACTIONS (13)
  - Cardiac failure acute [Fatal]
  - Clostridial infection [Fatal]
  - Abscess [Fatal]
  - Off label use [Unknown]
  - Condition aggravated [Fatal]
  - Acute endocarditis [Fatal]
  - Pleural effusion [Fatal]
  - Cardiac arrest [Fatal]
  - Heart valve incompetence [Fatal]
  - Pericarditis infective [Fatal]
  - Melaena [Recovered/Resolved]
  - Sepsis [Fatal]
  - Colon adenoma [Recovering/Resolving]
